FAERS Safety Report 5637109-0 (Version None)
Quarter: 2008Q1

REPORT INFORMATION
  Report Type: 
  Country: None (occurrence: None)
  Receive Date: 20080225
  Receipt Date: 20071108
  Transmission Date: 20080703
  Serious: No
  Sender: FDA-Public Use
  Company Number: US-BRISTOL-MYERS SQUIBB COMPANY-13957220

PATIENT
  Age: 62 Year
  Sex: Female

DRUGS (3)
  1. GLUCOPHAGE [Suspect]
     Indication: DIABETES MELLITUS
  2. FOSAMAX [Concomitant]
  3. GLUCOTROL [Concomitant]

REACTIONS (3)
  - FATIGUE [None]
  - NERVOUSNESS [None]
  - SOMNOLENCE [None]
